FAERS Safety Report 14831503 (Version 2)
Quarter: 2018Q3

REPORT INFORMATION
  Report Type: Spontaneous
  Country: US (occurrence: US)
  Receive Date: 20180501
  Receipt Date: 20180822
  Transmission Date: 20181010
  Serious: Yes (Other)
  Sender: FDA-Public Use
  Company Number: US-SUN PHARMACEUTICAL INDUSTRIES LTD-2018US-171186

PATIENT
  Age: 84 Year
  Sex: Female

DRUGS (1)
  1. IBUPROFEN. [Suspect]
     Active Substance: IBUPROFEN
     Indication: PRODUCT USED FOR UNKNOWN INDICATION
     Dosage: UNK
     Route: 065

REACTIONS (8)
  - Vasculitis [Unknown]
  - Antineutrophil cytoplasmic antibody [Unknown]
  - Acute kidney injury [Recovered/Resolved]
  - Microscopic polyangiitis [Unknown]
  - Glomerulonephritis rapidly progressive [Unknown]
  - Glomerulosclerosis [Unknown]
  - Vasculitis necrotising [Unknown]
  - Neuropathy peripheral [Unknown]
